FAERS Safety Report 8237802-X (Version None)
Quarter: 2012Q1

REPORT INFORMATION
  Report Type: 
  Country: None (occurrence: None)
  Receive Date: 20120326
  Receipt Date: 20120321
  Transmission Date: 20120608
  Serious: Yes (Death)
  Sender: FDA-Public Use
  Company Number: 2012SP015256

PATIENT
  Age: 61 Year
  Sex: Male
  Weight: 109.7705 kg

DRUGS (2)
  1. VICTRELLIS (200 MG) [Suspect]
     Indication: HEPATITIS C
     Dosage: 800 MG;TID;PO
     Route: 048
     Dates: start: 20111018
  2. PEGASYS [Suspect]
     Indication: PRODUCT USED FOR UNKNOWN INDICATION
     Dates: start: 20110908

REACTIONS (1)
  - HEPATIC FAILURE [None]
